FAERS Safety Report 10472256 (Version 1)
Quarter: 2014Q3

REPORT INFORMATION
  Report Type: Spontaneous
  Country: BR (occurrence: BR)
  Receive Date: 20140924
  Receipt Date: 20140924
  Transmission Date: 20150326
  Serious: Yes (Other)
  Sender: FDA-Public Use
  Company Number: BR-ASTRAZENECA-2014SE70826

PATIENT
  Sex: Male
  Weight: 95 kg

DRUGS (7)
  1. NORVASC [Concomitant]
     Active Substance: AMLODIPINE BESYLATE
  2. SELOZOK [Suspect]
     Active Substance: METOPROLOL SUCCINATE
     Route: 048
  3. ROSUVASTATIN [Suspect]
     Active Substance: ROSUVASTATIN
     Route: 048
  4. ATACAND HCT [Suspect]
     Active Substance: CANDESARTAN CILEXETIL\HYDROCHLOROTHIAZIDE
     Dosage: 16/12.5 MG, UNKNOWN
     Route: 048
  5. VASTAREL [Concomitant]
     Active Substance: TRIMETAZIDINE DIHYDROCHLORIDE
  6. BRILINTA [Suspect]
     Active Substance: TICAGRELOR
     Route: 048
     Dates: start: 201407
  7. SOMALGIN CARDIO [Concomitant]
     Active Substance: ASPIRIN\DIHYDROXYALUMINUM AMINOACETATE ANHYDROUS\MAGNESIUM CARBONATE

REACTIONS (1)
  - Cardiac disorder [Unknown]

NARRATIVE: CASE EVENT DATE: 2014
